FAERS Safety Report 6708696-6 (Version None)
Quarter: 2010Q2

REPORT INFORMATION
  Report Type: 
  Country: None (occurrence: None)
  Receive Date: 20100503
  Receipt Date: 20100429
  Transmission Date: 20101027
  Serious: Yes (Hospitalization)
  Sender: FDA-Public Use
  Company Number: FR-MERCK-1004FRA00147

PATIENT
  Age: 69 Year
  Sex: Male
  Weight: 63 kg

DRUGS (9)
  1. PRIMAXIN [Suspect]
     Route: 042
     Dates: start: 20091119
  2. RITUXIMAB [Suspect]
     Route: 065
     Dates: start: 20090603, end: 20090826
  3. FLUDARABINE PHOSPHATE [Suspect]
     Route: 042
     Dates: start: 20090603, end: 20090826
  4. CYCLOPHOSPHAMIDE [Suspect]
     Route: 042
     Dates: start: 20090603, end: 20090826
  5. VALACYCLOVIR HYDROCHLORIDE [Concomitant]
     Route: 065
  6. TAMSULOSIN HYDROCHLORIDE [Concomitant]
     Route: 065
  7. TAMSULOSIN HYDROCHLORIDE [Concomitant]
     Route: 065
  8. CIPROFLOXACIN HYDROCHLORIDE [Concomitant]
     Route: 065
     Dates: start: 20091001, end: 20091101
  9. ANTIMICROBIAL (UNSPECIFIED) [Concomitant]
     Route: 065
     Dates: start: 20091001, end: 20091101

REACTIONS (1)
  - FEBRILE NEUTROPENIA [None]
